FAERS Safety Report 19919538 (Version 1)
Quarter: 2021Q4

REPORT INFORMATION
  Report Type: Spontaneous
  Country: RU (occurrence: RU)
  Receive Date: 20211004
  Receipt Date: 20211004
  Transmission Date: 20220304
  Serious: Yes (Death, Other)
  Sender: FDA-Public Use
  Company Number: RU-NOVARTISPH-NVSC2021RU222193

PATIENT
  Sex: Female

DRUGS (2)
  1. OXALIPLATIN [Suspect]
     Active Substance: OXALIPLATIN
     Indication: Rectal cancer
     Dosage: 130 MG/M2, CYCLIC ON DAY 1 (TOTAL 4 CYCLES)
     Route: 065
  2. CAPECITABINE [Suspect]
     Active Substance: CAPECITABINE
     Indication: Rectal cancer
     Dosage: 2,000 MG/M2, QD DIVIDED INTO TWO DAILY DOSES FOR 14 DAYS AND THEN A 7 DAY BREAK (4 CYCLES)
     Route: 048

REACTIONS (1)
  - Acute myocardial infarction [Fatal]
